FAERS Safety Report 13710549 (Version 1)
Quarter: 2017Q3

REPORT INFORMATION
  Report Type: Report from Study
  Country: US (occurrence: US)
  Receive Date: 20170703
  Receipt Date: 20170703
  Transmission Date: 20171127
  Serious: No
  Sender: FDA-Public Use
  Company Number: US-AMGEN-USASP2017097813

PATIENT
  Age: 71 Year
  Sex: Female
  Weight: 55.33 kg

DRUGS (1)
  1. ENBREL [Suspect]
     Active Substance: ETANERCEPT
     Indication: RHEUMATOID ARTHRITIS
     Dosage: 50 MG, QWK
     Route: 058
     Dates: start: 20170618

REACTIONS (7)
  - Cold sweat [Unknown]
  - Fatigue [Unknown]
  - Tremor [Unknown]
  - Hyperhidrosis [Unknown]
  - Feeling hot [Unknown]
  - Hot flush [Unknown]
  - Rash [Unknown]

NARRATIVE: CASE EVENT DATE: 201706
